FAERS Safety Report 6271829-2 (Version None)
Quarter: 2009Q3

REPORT INFORMATION
  Report Type: 
  Country: None (occurrence: None)
  Receive Date: 20090717
  Receipt Date: 20090714
  Transmission Date: 20100115
  Serious: Yes (Hospitalization)
  Sender: FDA-Public Use
  Company Number: IT-BAYER-200925590GPV

PATIENT
  Age: 57 Year
  Sex: Male

DRUGS (3)
  1. NEXAVAR [Suspect]
     Indication: HEPATIC NEOPLASM MALIGNANT
     Route: 048
     Dates: start: 20080901, end: 20090330
  2. DRAMION [Concomitant]
     Route: 048
  3. LUVION [Concomitant]

REACTIONS (3)
  - ANAL FISTULA [None]
  - ELECTROLYTE IMBALANCE [None]
  - PYREXIA [None]
